FAERS Safety Report 8773145 (Version 2)
Quarter: 2012Q4

REPORT INFORMATION
  Report Type: Report from Study
  Country: CL (occurrence: CL)
  Receive Date: 20120907
  Receipt Date: 20120911
  Transmission Date: 20130627
  Serious: Yes (Hospitalization)
  Sender: FDA-Public Use
  Company Number: CL-ROCHE-1117134

PATIENT
  Age: 57 Year
  Sex: Female
  Weight: 66 kg

DRUGS (5)
  1. MABTHERA [Suspect]
     Indication: NON-HODGKIN^S LYMPHOMA
     Route: 042
     Dates: start: 20120530
  2. INSULIN [Concomitant]
     Indication: DIABETES MELLITUS
  3. PREGABALIN [Concomitant]
     Indication: NEUROPATHY PERIPHERAL
  4. METFORMIN [Concomitant]
     Indication: DIABETES MELLITUS
  5. ACETAMINOPHEN [Concomitant]
     Indication: NEUROPATHY PERIPHERAL

REACTIONS (1)
  - Urinary tract infection [Not Recovered/Not Resolved]
